FAERS Safety Report 8323397-9 (Version None)
Quarter: 2012Q2

REPORT INFORMATION
  Report Type: 
  Country: None (occurrence: None)
  Receive Date: 20120430
  Receipt Date: 20120415
  Transmission Date: 20120825
  Serious: Yes (Other)
  Sender: FDA-Public Use
  Company Number: US-ALLERGAN-1205435US

PATIENT
  Age: 50 Year
  Sex: Female

DRUGS (2)
  1. STEROID EYE DROPS [Concomitant]
     Indication: ULCERATIVE KERATITIS
     Route: 047
  2. BOTULINUM TOXIN TYPE A [Suspect]
     Indication: MIGRAINE
     Dosage: UNK
     Dates: start: 20120330, end: 20120330

REACTIONS (6)
  - ABNORMAL SENSATION IN EYE [None]
  - PHOTOPHOBIA [None]
  - ULCERATIVE KERATITIS [None]
  - EYELID PTOSIS [None]
  - EYELID OEDEMA [None]
  - EYE DISCHARGE [None]
